FAERS Safety Report 8854943 (Version 4)
Quarter: 2012Q4

REPORT INFORMATION
  Report Type: 
  Country: US (occurrence: US)
  Receive Date: 20121023
  Receipt Date: 20121214
  Transmission Date: 20130627
  Serious: Yes (Disabling)
  Sender: FDA-Public Use
  Company Number: US-009507513-1210USA007710

PATIENT
  Age: 9 Year
  Sex: Female

DRUGS (11)
  1. NASONEX [Suspect]
     Indication: RHINITIS ALLERGIC
     Dosage: 1 spray each nostril daily
     Route: 045
     Dates: start: 20081013
  2. ZYRTEC [Concomitant]
     Dosage: UNK, prn
  3. HUMIRA [Concomitant]
     Dosage: UNK
  4. METHOTREXATE [Concomitant]
     Dosage: UNK
  5. PREVACID [Concomitant]
     Dosage: UNK
  6. DEPAKOTE [Concomitant]
  7. VALPROIC ACID [Concomitant]
  8. FOLIC ACID [Concomitant]
  9. ZOFRAN [Concomitant]
  10. QVAR [Concomitant]
  11. INDOCIN (INDOMETHACIN) [Concomitant]

REACTIONS (3)
  - Coeliac disease [Unknown]
  - Crohn^s disease [Unknown]
  - Irritable bowel syndrome [Unknown]
